FAERS Safety Report 23964138 (Version 1)
Quarter: 2024Q2

REPORT INFORMATION
  Report Type: Spontaneous
  Country: US (occurrence: None)
  Receive Date: 20240611
  Receipt Date: 20240611
  Transmission Date: 20240716
  Serious: Yes (Other)
  Sender: FDA-Public Use
  Company Number: None

PATIENT
  Age: 33 Year
  Sex: Female
  Weight: 62.1 kg

DRUGS (8)
  1. SKYRIZI [Suspect]
     Active Substance: RISANKIZUMAB-RZAA
     Indication: Crohn^s disease
     Dosage: 360 MG Q8WEEKS SUBCUTANEOUS
     Route: 058
     Dates: start: 20240306
  2. AZATHIOPRINE [Concomitant]
     Active Substance: AZATHIOPRINE
  3. CHOLECALCIFEROL [Concomitant]
     Active Substance: CHOLECALCIFEROL
  4. MESALAMINE [Concomitant]
     Active Substance: MESALAMINE
  5. HERBALS\TURMERIC [Concomitant]
     Active Substance: HERBALS\TURMERIC
  6. ONDANSETRON [Concomitant]
     Active Substance: ONDANSETRON
  7. mesalaime/budesonide suppository [Concomitant]
  8. PREDNISONE [Concomitant]
     Active Substance: PREDNISONE

REACTIONS (2)
  - Loss of consciousness [None]
  - Nerve injury [None]

NARRATIVE: CASE EVENT DATE: 20240610
